FAERS Safety Report 15886594 (Version 1)
Quarter: 2019Q1

REPORT INFORMATION
  Report Type: Report from Study
  Country: FR (occurrence: FR)
  Receive Date: 20190129
  Receipt Date: 20190129
  Transmission Date: 20190417
  Serious: Yes (Hospitalization, Other)
  Sender: FDA-Public Use
  Company Number: FR-MYLANLABS-2019M1008217

PATIENT
  Age: 75 Year
  Sex: Male

DRUGS (3)
  1. FONDAPARINUX [Suspect]
     Active Substance: FONDAPARINUX
     Indication: THROMBOSIS
     Dosage: 2.5 MILLIGRAM, TID
     Route: 042
     Dates: start: 20181201, end: 20181203
  2. GSK 3359609 [Suspect]
     Active Substance: INVESTIGATIONAL PRODUCT
     Indication: NEOPLASM
     Dosage: UNK
     Dates: start: 20181121
  3. PEMBROLIZUMAB. [Suspect]
     Active Substance: PEMBROLIZUMAB
     Indication: NEOPLASM
     Dosage: 200 MILLIGRAM, CYCLE
     Route: 042
     Dates: start: 20181121

REACTIONS (3)
  - Haematuria [Recovered/Resolved]
  - Hypoglycaemia [Recovered/Resolved]
  - Malaise [None]

NARRATIVE: CASE EVENT DATE: 20181205
